FAERS Safety Report 10020973 (Version 4)
Quarter: 2014Q2

REPORT INFORMATION
  Report Type: Spontaneous
  Country: JP (occurrence: None)
  Receive Date: 20140313
  Receipt Date: 20140415
  Transmission Date: 20141212
  Serious: Yes (Hospitalization)
  Sender: FDA-Public Use
  Company Number: AE-SPE-2014-004

PATIENT
  Age: 4 Year
  Sex: Male

DRUGS (7)
  1. MEIACT MS [Suspect]
     Indication: OTITIS MEDIA
     Route: 048
     Dates: start: 20120924, end: 20120929
  2. MEIACT MS [Suspect]
     Indication: UPPER RESPIRATORY TRACT INFLAMMATION
     Route: 048
     Dates: start: 20120924, end: 20120929
  3. ANTIBIOTIC-RESISTANT LACTIC ACID BACTERIA [Concomitant]
  4. TIPEPIDINE HIBENZATE [Concomitant]
  5. CYPROHEPTADINE HYDROCHLORIDE HYDRATE [Concomitant]
  6. L-CARBOCISTEINE [Concomitant]
  7. TULOBUTEROL HYDROCHLORIDE [Concomitant]

REACTIONS (13)
  - Carnitine deficiency [None]
  - Metabolic acidosis [None]
  - Hypoglycaemia [None]
  - Abnormal behaviour [None]
  - Convulsion [None]
  - Altered state of consciousness [None]
  - Hypothermia [None]
  - Loss of consciousness [None]
  - Screaming [None]
  - Pyrexia [None]
  - Cough [None]
  - Victim of child abuse [None]
  - Abnormal behaviour [None]
